FAERS Safety Report 17445920 (Version 2)
Quarter: 2020Q1

REPORT INFORMATION
  Report Type: Spontaneous
  Country: JP (occurrence: JP)
  Receive Date: 20200221
  Receipt Date: 20200319
  Transmission Date: 20200409
  Serious: Yes (Other)
  Sender: FDA-Public Use
  Company Number: JP-KYOWAKIRIN-2019BKK012858

PATIENT

DRUGS (254)
  1. URSO [Concomitant]
     Active Substance: URSODIOL
     Dosage: 200 MG, TID, AFTER EVERY MEAL
     Route: 048
     Dates: start: 20141128, end: 20141217
  2. TAKEPRON [Concomitant]
     Active Substance: LANSOPRAZOLE
     Dosage: 15 MG, QD, AFTER BREAKFAST
     Route: 048
     Dates: start: 20141127, end: 20141217
  3. RINDERON V [Concomitant]
     Active Substance: BETAMETHASONE VALERATE
     Dosage: 10 G
     Route: 061
     Dates: start: 20141125, end: 20141125
  4. LOCOID [Concomitant]
     Active Substance: HYDROCORTISONE BUTYRATE
     Dosage: 5 G
     Route: 061
     Dates: start: 20141125, end: 20141125
  5. CRAVIT [Concomitant]
     Active Substance: LEVOFLOXACIN
     Dosage: 500 MG, QD, AFTER LUNCH
     Route: 048
     Dates: start: 20141128, end: 20141217
  6. EMEND [Concomitant]
     Active Substance: APREPITANT
     Dosage: 80 MG, QD, AFTER BREAKFAST
     Route: 048
     Dates: start: 20141127, end: 20141128
  7. SODIUM PICOSULFATE [Concomitant]
     Active Substance: SODIUM PICOSULFATE
     Dosage: 1 DF, WHEN CONSTIPATION OCCURRED
     Route: 048
     Dates: start: 20141126, end: 20141126
  8. DAIPHEN [Concomitant]
     Active Substance: SULFAMETHOXAZOLE\TRIMETHOPRIM
     Dosage: 1 DF, QD, AFTER BREAKFAST
     Route: 048
     Dates: start: 20141112, end: 20141125
  9. ACICLOVIR [Concomitant]
     Active Substance: ACYCLOVIR
     Dosage: 200 MG, 10X/DAY
     Route: 048
     Dates: start: 20141127, end: 20141127
  10. ACICLOVIR [Concomitant]
     Active Substance: ACYCLOVIR
     Dosage: 200 MG, 5X/DAY, AFTER EVERY MEAL, AT 15:00 AND BEDTIME
     Route: 048
     Dates: start: 20141128, end: 20141217
  11. ACICLOVIR [Concomitant]
     Active Substance: ACYCLOVIR
     Dosage: 200 MG, QD, AFTER BREAKFAST
     Route: 048
     Dates: start: 20150108, end: 20150131
  12. SEISHOKU [Concomitant]
     Active Substance: SODIUM CHLORIDE
     Dosage: 100 ML, BID
     Route: 065
     Dates: start: 20141209, end: 20141209
  13. SEISHOKU [Concomitant]
     Active Substance: SODIUM CHLORIDE
     Dosage: 100 ML, QID
     Route: 065
     Dates: start: 20141222, end: 20141229
  14. SEISHOKU [Concomitant]
     Active Substance: SODIUM CHLORIDE
     Dosage: 900 ML
     Route: 065
     Dates: start: 20150107, end: 20150107
  15. SEISHOKU [Concomitant]
     Active Substance: SODIUM CHLORIDE
     Dosage: 20 ML, 6X/DAY
     Route: 065
     Dates: start: 20141217, end: 20141217
  16. SEISHOKU [Concomitant]
     Active Substance: SODIUM CHLORIDE
     Dosage: 20 ML, 5X/DAY
     Route: 065
     Dates: start: 20150102, end: 20150102
  17. SEISHOKU [Concomitant]
     Active Substance: SODIUM CHLORIDE
     Dosage: 20 ML, QD
     Route: 065
     Dates: start: 20150111, end: 20150112
  18. SEISHOKU [Concomitant]
     Active Substance: SODIUM CHLORIDE
     Dosage: 20 ML, BID
     Route: 065
     Dates: start: 20150114, end: 20150114
  19. PRIMPERAN [Concomitant]
     Active Substance: METOCLOPRAMIDE HYDROCHLORIDE
     Dosage: 10 MG, QD
     Route: 065
     Dates: start: 20141203, end: 20141203
  20. PRIMPERAN [Concomitant]
     Active Substance: METOCLOPRAMIDE HYDROCHLORIDE
     Dosage: 10 MG, QD
     Route: 065
     Dates: start: 20141207, end: 20141207
  21. LASIX [Concomitant]
     Active Substance: FUROSEMIDE
     Dosage: 10 MG, QD
     Route: 065
     Dates: start: 20141220, end: 20141220
  22. LASIX [Concomitant]
     Active Substance: FUROSEMIDE
     Dosage: 10 MG, QD
     Route: 065
     Dates: start: 20150103, end: 20150103
  23. GRANISETRON [Concomitant]
     Active Substance: GRANISETRON
     Dosage: 3 MG, QD
     Route: 041
     Dates: start: 20141202, end: 20141202
  24. HEPARIN NA LOCK [Concomitant]
     Active Substance: HEPARIN SODIUM
     Dosage: 30 ML, QD
     Route: 065
     Dates: start: 20141127, end: 20141128
  25. HEPARIN NA LOCK [Concomitant]
     Active Substance: HEPARIN SODIUM
     Dosage: 10 ML, TID
     Route: 065
     Dates: start: 20150101, end: 20150106
  26. SOLACET F [Concomitant]
     Active Substance: CALCIUM CHLORIDE\POTASSIUM CHLORIDE\SODIUM ACETATE\SODIUM CHLORIDE
     Dosage: 1000 ML, QD
     Route: 065
     Dates: start: 20141129, end: 20141129
  27. SAXIZON [Concomitant]
     Active Substance: HYDROCORTISONE SODIUM SUCCINATE
     Dosage: 100 MG, QD
     Route: 065
     Dates: start: 20141220, end: 20141221
  28. FUNGUARD [Concomitant]
     Active Substance: MICAFUNGIN SODIUM
     Dosage: 150 MG, QD
     Route: 065
     Dates: start: 20150103, end: 20150109
  29. STRONGER NEO-MINOPHAGEN C [Concomitant]
     Active Substance: AMMONIUM GLYCYRRHIZATE\CYSTEINE HYDROCHLORIDE\GLYCINE
     Dosage: 40 ML, QD
     Route: 065
     Dates: start: 20141212, end: 20150126
  30. PROGRAF [Concomitant]
     Active Substance: TACROLIMUS
     Dosage: 0.6 MG, QD
     Route: 065
     Dates: start: 20141208, end: 20141209
  31. PROGRAF [Concomitant]
     Active Substance: TACROLIMUS
     Dosage: 0.9 MG, QD
     Route: 065
     Dates: start: 20141217, end: 20141218
  32. PROGRAF [Concomitant]
     Active Substance: TACROLIMUS
     Dosage: 1 MG, QD
     Route: 065
     Dates: start: 20141219, end: 20141219
  33. OXIFAST [Concomitant]
     Active Substance: OXYCODONE
     Dosage: 2 ML, QD
     Route: 065
     Dates: start: 20141212, end: 20141213
  34. SEISHOKU [Concomitant]
     Active Substance: SODIUM CHLORIDE
     Dosage: 100 ML, TID
     Route: 065
     Dates: start: 20141214, end: 20141221
  35. AZUNOL GARGLE LIQUID [Concomitant]
     Dosage: UNK
     Dates: start: 20150103, end: 20150103
  36. LAC-B [Concomitant]
     Active Substance: BIFIDOBACTERIUM SPP.
     Dosage: 1 G, TID, AFTER EVERY MEAL
     Route: 048
     Dates: start: 20141228, end: 20150104
  37. CRAVIT [Concomitant]
     Active Substance: LEVOFLOXACIN
     Dosage: 500 MG, QD
     Route: 065
     Dates: start: 20141231, end: 20150102
  38. SOL-MELCORT [Concomitant]
     Active Substance: METHYLPREDNISOLONE SODIUM SUCCINATE
     Dosage: 125 MG, QD
     Route: 065
     Dates: start: 20141203, end: 20141203
  39. ITRIZOLE [Concomitant]
     Active Substance: ITRACONAZOLE
     Dosage: 200 MG, QD, BEFORE BREAKFAST
     Route: 048
     Dates: start: 20150113, end: 20150115
  40. PROGRAF [Concomitant]
     Active Substance: TACROLIMUS
     Dosage: 1 MG, QD, AFTER BREAKFAST
     Route: 048
     Dates: start: 20150116, end: 20150116
  41. PROGRAF [Concomitant]
     Active Substance: TACROLIMUS
     Dosage: 1 MG, QD, AFTER BREAKFAST
     Route: 048
     Dates: start: 20150123, end: 20150125
  42. HEPAFLUSH [Concomitant]
     Active Substance: HEPARIN SODIUM
     Dosage: 10 ML, BID
     Route: 065
     Dates: start: 20150116, end: 20150131
  43. PREDONINE [PREDNISOLONE SODIUM SUCCINATE] [Concomitant]
     Active Substance: PREDNISOLONE SODIUM SUCCINATE
     Dosage: 50 MG
     Route: 065
     Dates: start: 20150103, end: 20150103
  44. PREDONINE [PREDNISOLONE SODIUM SUCCINATE] [Concomitant]
     Active Substance: PREDNISOLONE SODIUM SUCCINATE
     Dosage: 70 MG
     Route: 065
     Dates: start: 20150104, end: 20150104
  45. VANCOMYCIN [VANCOMYCIN HYDROCHLORIDE] [Concomitant]
     Active Substance: VANCOMYCIN HYDROCHLORIDE
     Dosage: 1000 MG, BID
     Route: 042
     Dates: start: 20150104, end: 20150104
  46. URSO [Concomitant]
     Active Substance: URSODIOL
     Dosage: 100 MG, TID, AFTER EVERY MEAL
     Route: 048
     Dates: start: 20150130, end: 20150131
  47. MAGMITT [Concomitant]
     Active Substance: MAGNESIUM OXIDE
     Dosage: 330 MG, TID, AFTER EVERY MEAL
     Route: 048
     Dates: start: 20141126, end: 20141202
  48. VEEN D [Concomitant]
     Active Substance: CALCIUM CHLORIDE\DEXTROSE\POTASSIUM CHLORIDE\SODIUM ACETATE\SODIUM CHLORIDE
     Dosage: 1000 ML, QD
     Route: 065
     Dates: start: 20141130, end: 20141130
  49. SEISHOKU [Concomitant]
     Active Substance: SODIUM CHLORIDE
     Dosage: 100 ML, BID
     Route: 065
     Dates: start: 20141125, end: 20141130
  50. SEISHOKU [Concomitant]
     Active Substance: SODIUM CHLORIDE
     Dosage: 100 ML, QD
     Route: 065
     Dates: start: 20141201, end: 20141201
  51. SEISHOKU [Concomitant]
     Active Substance: SODIUM CHLORIDE
     Dosage: 100 ML, QD
     Route: 065
     Dates: start: 20141204, end: 20141204
  52. SEISHOKU [Concomitant]
     Active Substance: SODIUM CHLORIDE
     Dosage: 1000 ML
     Route: 065
     Dates: start: 20150102, end: 20150102
  53. SEISHOKU [Concomitant]
     Active Substance: SODIUM CHLORIDE
     Dosage: 600 ML
     Route: 065
     Dates: start: 20150109, end: 20150109
  54. SEISHOKU [Concomitant]
     Active Substance: SODIUM CHLORIDE
     Dosage: 20 ML, QD
     Route: 065
     Dates: start: 20141129, end: 20141201
  55. SEISHOKU [Concomitant]
     Active Substance: SODIUM CHLORIDE
     Dosage: 20 ML, BID
     Route: 065
     Dates: start: 20141208, end: 20141208
  56. SEISHOKU [Concomitant]
     Active Substance: SODIUM CHLORIDE
     Dosage: 20 ML, 5X/DAY
     Route: 065
     Dates: start: 20150105, end: 20150106
  57. SEISHOKU [Concomitant]
     Active Substance: SODIUM CHLORIDE
     Dosage: 20 ML, QD
     Route: 065
     Dates: start: 20150109, end: 20150109
  58. SOLDEM 3A [Concomitant]
     Active Substance: CARBOHYDRATES\POTASSIUM CHLORIDE\SODIUM CHLORIDE\SODIUM LACTATE
     Dosage: 1000 ML, QD
     Route: 065
     Dates: start: 20141126, end: 20141130
  59. PRIMPERAN [Concomitant]
     Active Substance: METOCLOPRAMIDE HYDROCHLORIDE
     Dosage: 10 MG, QD
     Route: 065
     Dates: start: 20141211, end: 20141213
  60. PRIMPERAN [Concomitant]
     Active Substance: METOCLOPRAMIDE HYDROCHLORIDE
     Dosage: 10 MG, QD
     Route: 065
     Dates: start: 20150102, end: 20150102
  61. MEYLON [Concomitant]
     Active Substance: SODIUM BICARBONATE
     Dosage: 80 ML, QD
     Route: 042
     Dates: start: 20141126, end: 20141126
  62. LASIX [Concomitant]
     Active Substance: FUROSEMIDE
     Dosage: 10 MG, QD
     Route: 065
     Dates: start: 20141203, end: 20141203
  63. HEPARIN NA LOCK [Concomitant]
     Active Substance: HEPARIN SODIUM
     Dosage: 10 ML, TID
     Route: 065
     Dates: start: 20141201, end: 20141203
  64. BUSULFEX [Concomitant]
     Active Substance: BUSULFAN
     Dosage: 147 MG, QD
     Route: 041
     Dates: start: 20141127, end: 20141128
  65. TAKEPRON [Concomitant]
     Active Substance: LANSOPRAZOLE
     Dosage: 30 MG, BID
     Route: 042
     Dates: start: 20141212, end: 20150106
  66. FUNGUARD [Concomitant]
     Active Substance: MICAFUNGIN SODIUM
     Dosage: 50 MG, QD
     Route: 065
     Dates: start: 20141212, end: 20150102
  67. NEUTROGIN [Concomitant]
     Active Substance: LENOGRASTIM
     Dosage: 250 UG, QD
     Route: 065
     Dates: start: 20141208, end: 20141219
  68. MAGNESIUM SULFATE. [Concomitant]
     Active Substance: MAGNESIUM SULFATE
     Dosage: 20 ML, BID
     Route: 065
     Dates: start: 20141222, end: 20141222
  69. MAGNESIUM SULFATE. [Concomitant]
     Active Substance: MAGNESIUM SULFATE
     Dosage: 20 ML, BID
     Route: 065
     Dates: start: 20141226, end: 20141226
  70. MAGNESIUM SULFATE. [Concomitant]
     Active Substance: MAGNESIUM SULFATE
     Dosage: 20 ML, QD
     Route: 065
     Dates: start: 20141227, end: 20150126
  71. PROGRAF [Concomitant]
     Active Substance: TACROLIMUS
     Dosage: 0.8 MG, QD
     Route: 065
     Dates: start: 20141215, end: 20141216
  72. PROGRAF [Concomitant]
     Active Substance: TACROLIMUS
     Dosage: 1 MG, QD
     Route: 065
     Dates: start: 20150105, end: 20150105
  73. LOPEMIN [LOPERAMIDE HYDROCHLORIDE] [Concomitant]
     Active Substance: LOPERAMIDE HYDROCHLORIDE
     Dosage: 1 MG, QD, PRN
     Route: 048
     Dates: start: 20141210, end: 20141210
  74. BORRAZA-G [Concomitant]
     Active Substance: LIDOCAINE\TRIBENOSIDE
     Dosage: UNK
     Route: 061
     Dates: start: 20141210, end: 20141210
  75. AZUNOL GARGLE LIQUID [Concomitant]
     Dosage: UNK
     Dates: start: 20150111, end: 20150111
  76. METHOTREXATE. [Concomitant]
     Active Substance: METHOTREXATE
     Dosage: 10 MG, QD
     Route: 065
     Dates: start: 20141209, end: 20141209
  77. DEXART [Concomitant]
     Active Substance: DEXAMETHASONE SODIUM PHOSPHATE
     Dosage: 0.5 DF, QD
     Route: 065
     Dates: start: 20141202, end: 20141202
  78. CRAVIT [Concomitant]
     Active Substance: LEVOFLOXACIN
     Dosage: 500 MG, QD
     Route: 065
     Dates: start: 20141222, end: 20141226
  79. CLARITH [Concomitant]
     Active Substance: CLARITHROMYCIN
     Dosage: 200 MG, BID, AFTER BREAKFAST AND DINNER
     Route: 048
     Dates: start: 20150114, end: 20150118
  80. PROGRAF [Concomitant]
     Active Substance: TACROLIMUS
     Dosage: 1 MG, QD, AFTER BREAKFAST
     Route: 048
     Dates: start: 20150117, end: 20150117
  81. MYSER [DIFLUPREDNATE] [Concomitant]
     Dosage: UNK
     Route: 061
     Dates: start: 20150130, end: 20150130
  82. TAKEPRON [Concomitant]
     Active Substance: LANSOPRAZOLE
     Dosage: 15 MG, QD, AFTER BREAKFAST
     Route: 048
     Dates: start: 20141112, end: 20141125
  83. HIRUDOID [Concomitant]
     Active Substance: GLYCOSAMINOGLYCANS
     Dosage: UNK
     Route: 061
     Dates: start: 20141119, end: 20141119
  84. CRAVIT [Concomitant]
     Active Substance: LEVOFLOXACIN
     Dosage: 500 MG, BID
     Route: 048
     Dates: start: 20141127, end: 20141127
  85. EMEND [Concomitant]
     Active Substance: APREPITANT
     Dosage: 125 MG, QD, AFTER BREAKFAST
     Route: 048
     Dates: start: 20141127, end: 20141127
  86. FLUCONAZOLE. [Concomitant]
     Active Substance: FLUCONAZOLE
     Dosage: 200 MG, QD, AFTER BREAKFAST
     Route: 048
     Dates: start: 20141128, end: 20141217
  87. ACICLOVIR [Concomitant]
     Active Substance: ACYCLOVIR
     Dosage: 200 MG, QD, AFTER BREAKFAST
     Route: 048
     Dates: start: 20141112, end: 20141119
  88. SEISHOKU [Concomitant]
     Active Substance: SODIUM CHLORIDE
     Dosage: 20 ML, 5X/DAY
     Route: 065
     Dates: start: 20141214, end: 20141215
  89. SEISHOKU [Concomitant]
     Active Substance: SODIUM CHLORIDE
     Dosage: 20 ML, QID
     Route: 065
     Dates: start: 20141220, end: 20141220
  90. SEISHOKU [Concomitant]
     Active Substance: SODIUM CHLORIDE
     Dosage: 500 ML, QD
     Route: 065
     Dates: start: 20141127, end: 20141128
  91. PRIMPERAN [Concomitant]
     Active Substance: METOCLOPRAMIDE HYDROCHLORIDE
     Dosage: 10 MG, QD
     Route: 065
     Dates: start: 20141209, end: 20141209
  92. HEPARIN NA LOCK [Concomitant]
     Active Substance: HEPARIN SODIUM
     Dosage: 10 ML, QID
     Route: 065
     Dates: start: 20141210, end: 20141210
  93. HEPARIN NA LOCK [Concomitant]
     Active Substance: HEPARIN SODIUM
     Dosage: 60 ML
     Route: 065
     Dates: start: 20141217, end: 20141217
  94. SOLACET F [Concomitant]
     Active Substance: CALCIUM CHLORIDE\POTASSIUM CHLORIDE\SODIUM ACETATE\SODIUM CHLORIDE
     Dosage: 1000 ML, QD
     Route: 065
     Dates: start: 20141125, end: 20141126
  95. KCL [Concomitant]
     Active Substance: POTASSIUM CHLORIDE
     Dosage: 10 ML, QD
     Route: 065
     Dates: start: 20150107, end: 20150115
  96. FUNGUARD [Concomitant]
     Active Substance: MICAFUNGIN SODIUM
     Dosage: 50 MG, QD
     Route: 065
     Dates: start: 20150110, end: 20150113
  97. VICCLOX [ACICLOVIR] [Concomitant]
     Active Substance: ACYCLOVIR
     Dosage: 250 MG, QD
     Route: 065
     Dates: start: 20150108, end: 20150108
  98. ROPION [Concomitant]
     Active Substance: FLURBIPROFEN AXETIL
     Dosage: 50 MG, BID
     Route: 065
     Dates: start: 20141221, end: 20141221
  99. PROGRAF [Concomitant]
     Active Substance: TACROLIMUS
     Dosage: 0.9 MG, QD
     Route: 065
     Dates: start: 20141203, end: 20141203
  100. PROGRAF [Concomitant]
     Active Substance: TACROLIMUS
     Dosage: 0.7 MG, QD
     Route: 065
     Dates: start: 20141205, end: 20141207
  101. OXIFAST [Concomitant]
     Active Substance: OXYCODONE
     Dosage: 4 ML, QOD
     Route: 065
     Dates: start: 20141215, end: 20141221
  102. AZUNOL GARGLE LIQUID [Concomitant]
     Dosage: UNK
     Dates: start: 20141220, end: 20141220
  103. ELNEOPA NO.1 [Concomitant]
     Active Substance: AMINO ACIDS\DEXTROSE\ELECTROLYTES NOS\MINERALS\VITAMINS
     Dosage: 1000 ML, QD
     Route: 065
     Dates: start: 20141203, end: 20141203
  104. ELNEOPA NO.1 [Concomitant]
     Active Substance: AMINO ACIDS\DEXTROSE\ELECTROLYTES NOS\MINERALS\VITAMINS
     Dosage: 1500 ML, QD
     Route: 065
     Dates: start: 20141204, end: 20141205
  105. PROGRAF [Concomitant]
     Active Substance: TACROLIMUS
     Dosage: UNK
     Route: 048
     Dates: start: 20150107, end: 20150110
  106. PROGRAF [Concomitant]
     Active Substance: TACROLIMUS
     Dosage: UNK
     Route: 048
     Dates: start: 20150126, end: 20150127
  107. URSO [Concomitant]
     Active Substance: URSODIOL
     Dosage: 200 MG, TID, AFTER EVERY MEAL
     Route: 048
     Dates: start: 20141125, end: 20141126
  108. URSO [Concomitant]
     Active Substance: URSODIOL
     Dosage: 100 MG, TID, AFTER EVERY MEAL
     Route: 048
     Dates: start: 20150126, end: 20150128
  109. TAKEPRON [Concomitant]
     Active Substance: LANSOPRAZOLE
     Dosage: 15 MG, QD, AFTER BREAKFAST
     Route: 048
     Dates: start: 20150109, end: 20150131
  110. HIRUDOID [Concomitant]
     Active Substance: GLYCOSAMINOGLYCANS
     Dosage: UNK
     Route: 061
     Dates: start: 20141201, end: 20141201
  111. CRAVIT [Concomitant]
     Active Substance: LEVOFLOXACIN
     Dosage: 2 DF, QD, AFTER LUNCH
     Route: 048
     Dates: start: 20141125, end: 20141126
  112. FLUCONAZOLE. [Concomitant]
     Active Substance: FLUCONAZOLE
     Dosage: 200 MG, BID
     Route: 048
     Dates: start: 20141127, end: 20141127
  113. SEISHOKU [Concomitant]
     Active Substance: SODIUM CHLORIDE
     Dosage: 100 ML, TID
     Route: 065
     Dates: start: 20141203, end: 20141203
  114. SEISHOKU [Concomitant]
     Active Substance: SODIUM CHLORIDE
     Dosage: 100 ML, QD
     Route: 065
     Dates: start: 20141206, end: 20141206
  115. SEISHOKU [Concomitant]
     Active Substance: SODIUM CHLORIDE
     Dosage: 100 ML, QD
     Route: 065
     Dates: start: 20141210, end: 20141211
  116. SEISHOKU [Concomitant]
     Active Substance: SODIUM CHLORIDE
     Dosage: 100 ML, QID
     Route: 065
     Dates: start: 20141212, end: 20141212
  117. SEISHOKU [Concomitant]
     Active Substance: SODIUM CHLORIDE
     Dosage: 100 ML, 6X/DAY
     Route: 065
     Dates: start: 20141213, end: 20141214
  118. SEISHOKU [Concomitant]
     Active Substance: SODIUM CHLORIDE
     Dosage: 100 ML, 5X/DAY
     Route: 065
     Dates: start: 20141230, end: 20141230
  119. SEISHOKU [Concomitant]
     Active Substance: SODIUM CHLORIDE
     Dosage: 1000 ML
     Route: 065
     Dates: start: 20150105, end: 20150105
  120. SEISHOKU [Concomitant]
     Active Substance: SODIUM CHLORIDE
     Dosage: 124 ML
     Route: 065
     Dates: start: 20141219, end: 20141219
  121. SEISHOKU [Concomitant]
     Active Substance: SODIUM CHLORIDE
     Dosage: 124 ML
     Route: 065
     Dates: start: 20141221, end: 20141221
  122. PRIMPERAN [Concomitant]
     Active Substance: METOCLOPRAMIDE HYDROCHLORIDE
     Dosage: 10 MG, BID
     Route: 065
     Dates: start: 20141206, end: 20141206
  123. GRANISETRON [Concomitant]
     Active Substance: GRANISETRON
     Dosage: 3 MG, QD
     Route: 041
     Dates: start: 20141125, end: 20141130
  124. HEPARIN NA LOCK [Concomitant]
     Active Substance: HEPARIN SODIUM
     Dosage: 10 ML, QID
     Route: 065
     Dates: start: 20141204, end: 20141204
  125. HEPARIN NA LOCK [Concomitant]
     Active Substance: HEPARIN SODIUM
     Dosage: 10 ML, TID
     Route: 065
     Dates: start: 20141218, end: 20141230
  126. SEISHOKU [Concomitant]
     Active Substance: SODIUM CHLORIDE
     Dosage: 250 ML, QD
     Route: 065
     Dates: start: 20141202, end: 20141203
  127. KCL [Concomitant]
     Active Substance: POTASSIUM CHLORIDE
     Dosage: 10 ML, QD
     Route: 065
     Dates: start: 20141226, end: 20141226
  128. SAXIZON [Concomitant]
     Active Substance: HYDROCORTISONE SODIUM SUCCINATE
     Dosage: 100 MG, QD
     Route: 065
     Dates: start: 20150101, end: 20150101
  129. VICCLOX [ACICLOVIR] [Concomitant]
     Active Substance: ACYCLOVIR
     Dosage: 250 MG, TID
     Route: 065
     Dates: start: 20141213, end: 20150104
  130. PROGRAF [Concomitant]
     Active Substance: TACROLIMUS
     Dosage: 1 MG, QD
     Route: 065
     Dates: start: 20141202, end: 20141202
  131. AZUNOL GARGLE LIQUID [Concomitant]
     Dosage: UNK
     Dates: start: 20141226, end: 20141226
  132. SEISHOKU [Concomitant]
     Active Substance: SODIUM CHLORIDE
     Dosage: 1000 ML, QD
     Route: 065
     Dates: start: 20150101, end: 20150101
  133. PROGRAF [Concomitant]
     Active Substance: TACROLIMUS
     Dosage: 0.5 MG, QD, AFTER BREAKFAST
     Route: 048
     Dates: start: 20150108, end: 20150108
  134. FLUCONAZOLE. [Concomitant]
     Active Substance: FLUCONAZOLE
     Dosage: 200 MG, QD, AFTER LUNCH
     Route: 048
     Dates: start: 20150119, end: 20150131
  135. HEPAFLUSH [Concomitant]
     Active Substance: HEPARIN SODIUM
     Dosage: 10 ML, QD
     Route: 065
     Dates: start: 20150115, end: 20150115
  136. PREDONINE [PREDNISOLONE SODIUM SUCCINATE] [Concomitant]
     Active Substance: PREDNISOLONE SODIUM SUCCINATE
     Dosage: 50 MG
     Route: 065
     Dates: start: 20150105, end: 20150116
  137. BFLUID [Concomitant]
     Active Substance: AMINO ACIDS\DEXTROSE\ELECTROLYTES NOS\VITAMINS
     Dosage: 500 ML, QD
     Route: 065
     Dates: start: 20150116, end: 20150126
  138. CUBICIN [Concomitant]
     Active Substance: DAPTOMYCIN
     Dosage: 200 MG, QD
     Route: 042
     Dates: start: 20150105, end: 20150107
  139. URSO [Concomitant]
     Active Substance: URSODIOL
     Dosage: UNK UNK, 5X/DAY
     Route: 048
     Dates: start: 20150129, end: 20150129
  140. LAMISIL [Concomitant]
     Active Substance: TERBINAFINE HYDROCHLORIDE
     Dosage: 10 G
     Route: 061
     Dates: start: 20141125, end: 20141125
  141. SEISHOKU [Concomitant]
     Active Substance: SODIUM CHLORIDE
     Dosage: 1000 ML
     Route: 065
     Dates: start: 20150106, end: 20150106
  142. SEISHOKU [Concomitant]
     Active Substance: SODIUM CHLORIDE
     Dosage: 20 ML, QD
     Route: 065
     Dates: start: 20141207, end: 20141207
  143. SEISHOKU [Concomitant]
     Active Substance: SODIUM CHLORIDE
     Dosage: 20 ML, 5X/DAY
     Route: 065
     Dates: start: 20141212, end: 20141213
  144. SEISHOKU [Concomitant]
     Active Substance: SODIUM CHLORIDE
     Dosage: 60 ML, QD
     Route: 065
     Dates: start: 20150108, end: 20150108
  145. NOVAMIN [AMIKACIN SULFATE] [Concomitant]
     Dosage: 5 MG, QD
     Route: 030
     Dates: start: 20141130, end: 20141130
  146. PRIMPERAN [Concomitant]
     Active Substance: METOCLOPRAMIDE HYDROCHLORIDE
     Dosage: 10 MG, QD
     Route: 065
     Dates: start: 20141129, end: 20141130
  147. FLUDARABINE PHOSPHATE. [Concomitant]
     Active Substance: FLUDARABINE PHOSPHATE
     Dosage: 42 MG, QD
     Route: 042
     Dates: start: 20141125, end: 20141130
  148. MEYLON [Concomitant]
     Active Substance: SODIUM BICARBONATE
     Dosage: 100 ML, BID, 20ML IN THE MORNING AND 80ML, IN THE AFTERNOON
     Route: 042
     Dates: start: 20141125, end: 20141125
  149. HEPARIN NA LOCK [Concomitant]
     Active Substance: HEPARIN SODIUM
     Dosage: 10 ML, QID
     Route: 065
     Dates: start: 20150107, end: 20150107
  150. HEPARIN NA LOCK [Concomitant]
     Active Substance: HEPARIN SODIUM
     Dosage: 10 ML, BID
     Route: 065
     Dates: start: 20150108, end: 20150113
  151. SOLACET F [Concomitant]
     Active Substance: CALCIUM CHLORIDE\POTASSIUM CHLORIDE\SODIUM ACETATE\SODIUM CHLORIDE
     Dosage: 500 ML, QD
     Route: 065
     Dates: start: 20141127, end: 20141128
  152. VICCLOX [ACICLOVIR] [Concomitant]
     Active Substance: ACYCLOVIR
     Dosage: 250 MG, BID
     Route: 065
     Dates: start: 20141212, end: 20141212
  153. VICCLOX [ACICLOVIR] [Concomitant]
     Active Substance: ACYCLOVIR
     Dosage: 250 MG, BID
     Route: 065
     Dates: start: 20150104, end: 20150107
  154. PROGRAF [Concomitant]
     Active Substance: TACROLIMUS
     Dosage: 0.55 MG, QD
     Route: 065
     Dates: start: 20141210, end: 20141211
  155. PROGRAF [Concomitant]
     Active Substance: TACROLIMUS
     Dosage: 1.3 MG
     Route: 065
     Dates: start: 20141213, end: 20141213
  156. PROGRAF [Concomitant]
     Active Substance: TACROLIMUS
     Dosage: 0.7 MG, QD
     Route: 065
     Dates: start: 20141214, end: 20141214
  157. SEISHOKU [Concomitant]
     Active Substance: SODIUM CHLORIDE
     Dosage: 100 ML, QD
     Route: 065
     Dates: start: 20141222, end: 20141231
  158. LAC-B [Concomitant]
     Active Substance: BIFIDOBACTERIUM SPP.
     Dosage: 1 G, 6X/DAY
     Route: 048
     Dates: start: 20141227, end: 20141227
  159. CALONAL [Concomitant]
     Active Substance: ACETAMINOPHEN
     Dosage: 400 MG, PRN
     Route: 048
     Dates: start: 20150102, end: 20150102
  160. PROGRAF [Concomitant]
     Active Substance: TACROLIMUS
     Dosage: 1 MG, QD, AFTER BREAKFAST
     Route: 048
     Dates: start: 20150107, end: 20150115
  161. PROGRAF [Concomitant]
     Active Substance: TACROLIMUS
     Dosage: 1 MG, QD, AFTER BREAKFAST
     Route: 048
     Dates: start: 20150128, end: 20150131
  162. ALLEGRA [Concomitant]
     Active Substance: FEXOFENADINE HYDROCHLORIDE
     Dosage: 2 DF, BID, AFTER BREAKFAST AND DINNER
     Route: 048
     Dates: start: 20141121, end: 20141125
  163. ALLEGRA [Concomitant]
     Active Substance: FEXOFENADINE HYDROCHLORIDE
     Dosage: 1 DF, QID
     Route: 048
     Dates: start: 20141126, end: 20141126
  164. VALIXA [Concomitant]
     Active Substance: VALGANCICLOVIR
     Dosage: 900 MG, QD, AFTER BREAKFAST
     Route: 048
     Dates: start: 20141101, end: 20141110
  165. DAIPHEN [Concomitant]
     Active Substance: SULFAMETHOXAZOLE\TRIMETHOPRIM
     Dosage: 0.5 DF, QD, AFTER LUNCH
     Route: 048
     Dates: start: 20150110, end: 20150131
  166. SEISHOKU [Concomitant]
     Active Substance: SODIUM CHLORIDE
     Dosage: 100 ML, QD
     Route: 065
     Dates: start: 20141208, end: 20141208
  167. SEISHOKU [Concomitant]
     Active Substance: SODIUM CHLORIDE
     Dosage: 100 ML, 6X/DAY
     Route: 065
     Dates: start: 20141231, end: 20141231
  168. SEISHOKU [Concomitant]
     Active Substance: SODIUM CHLORIDE
     Dosage: 20 ML, QD
     Route: 065
     Dates: start: 20141203, end: 20141203
  169. SEISHOKU [Concomitant]
     Active Substance: SODIUM CHLORIDE
     Dosage: 20 ML, QD
     Route: 065
     Dates: start: 20141209, end: 20141211
  170. SEISHOKU [Concomitant]
     Active Substance: SODIUM CHLORIDE
     Dosage: 120 ML
     Route: 065
     Dates: start: 20141218, end: 20141218
  171. PRIMPERAN [Concomitant]
     Active Substance: METOCLOPRAMIDE HYDROCHLORIDE
     Dosage: 10 MG, BID
     Route: 065
     Dates: start: 20141208, end: 20141208
  172. PRIMPERAN [Concomitant]
     Active Substance: METOCLOPRAMIDE HYDROCHLORIDE
     Dosage: 10 MG, BID
     Route: 065
     Dates: start: 20141210, end: 20141210
  173. MEYLON [Concomitant]
     Active Substance: SODIUM BICARBONATE
     Dosage: 80 ML, QD
     Route: 042
     Dates: start: 20141129, end: 20141130
  174. HEPARIN NA LOCK [Concomitant]
     Active Substance: HEPARIN SODIUM
     Dosage: 30 ML, QD
     Route: 065
     Dates: start: 20141122, end: 20141125
  175. HEPARIN NA LOCK [Concomitant]
     Active Substance: HEPARIN SODIUM
     Dosage: 10 ML, TID
     Route: 065
     Dates: start: 20141205, end: 20141209
  176. HEPARIN NA LOCK [Concomitant]
     Active Substance: HEPARIN SODIUM
     Dosage: 10 ML, TID
     Route: 065
     Dates: start: 20141215, end: 20141216
  177. ELNEOPA NO.2 [Concomitant]
     Active Substance: AMINO ACIDS\DEXTROSE\ELECTROLYTES NOS\MINERALS\VITAMINS
     Dosage: 1500 ML, QD
     Route: 065
     Dates: start: 20141206, end: 20150108
  178. SEISHOKU [Concomitant]
     Active Substance: SODIUM CHLORIDE
     Dosage: 100 ML, QD
     Route: 065
     Dates: start: 20141212, end: 20141213
  179. CRAVIT [Concomitant]
     Active Substance: LEVOFLOXACIN
     Dosage: 500 MG, QD
     Route: 065
     Dates: start: 20141212, end: 20141213
  180. ELNEOPA NO.1 [Concomitant]
     Active Substance: AMINO ACIDS\DEXTROSE\ELECTROLYTES NOS\MINERALS\VITAMINS
     Dosage: 1500 ML, QD
     Route: 065
     Dates: start: 20141202, end: 20141202
  181. HAPTOGLOBIN [Concomitant]
     Dosage: 2000 IU, TID
     Route: 065
     Dates: start: 20141203, end: 20141203
  182. ACELIO [Concomitant]
     Active Substance: ACETAMINOPHEN
     Dosage: 1000 MG, TID
     Route: 065
     Dates: start: 20150102, end: 20150105
  183. FLUCONAZOLE. [Concomitant]
     Active Substance: FLUCONAZOLE
     Dosage: 200 MG, BID
     Route: 048
     Dates: start: 20150118, end: 20150118
  184. CUBICIN [Concomitant]
     Active Substance: DAPTOMYCIN
     Dosage: 300 MG, QD
     Route: 042
     Dates: start: 20150108, end: 20150116
  185. ALLEGRA [Concomitant]
     Active Substance: FEXOFENADINE HYDROCHLORIDE
     Dosage: 1 DF, BID
     Route: 048
     Dates: start: 20141127, end: 20141129
  186. TAKEPRON [Concomitant]
     Active Substance: LANSOPRAZOLE
     Dosage: 15 MG, QD, AFTER BREAKFAST
     Route: 048
     Dates: start: 20150107, end: 20150107
  187. FLUCONAZOLE. [Concomitant]
     Active Substance: FLUCONAZOLE
     Dosage: 200 MG, QD, AFTER BREAKFAST
     Route: 048
     Dates: start: 20141125, end: 20141126
  188. SEISHOKU [Concomitant]
     Active Substance: SODIUM CHLORIDE
     Dosage: 700 ML
     Route: 065
     Dates: start: 20150108, end: 20150108
  189. SEISHOKU [Concomitant]
     Active Substance: SODIUM CHLORIDE
     Dosage: 300 ML
     Route: 065
     Dates: start: 20150110, end: 20150113
  190. SEISHOKU [Concomitant]
     Active Substance: SODIUM CHLORIDE
     Dosage: 46 ML, QD
     Route: 065
     Dates: start: 20141212, end: 20141213
  191. SEISHOKU [Concomitant]
     Active Substance: SODIUM CHLORIDE
     Dosage: 20 ML, QID
     Route: 065
     Dates: start: 20141216, end: 20141216
  192. SEISHOKU [Concomitant]
     Active Substance: SODIUM CHLORIDE
     Dosage: 20 ML, QID
     Route: 065
     Dates: start: 20141222, end: 20150101
  193. LASIX [Concomitant]
     Active Substance: FUROSEMIDE
     Dosage: 20 MG, QD
     Route: 065
     Dates: start: 20141221, end: 20141221
  194. HEPARIN NA LOCK [Concomitant]
     Active Substance: HEPARIN SODIUM
     Dosage: BID, 10 ML IN THE MORNING AND 20 ML AT NOON
     Route: 065
     Dates: start: 20141126, end: 20141126
  195. HEPARIN NA LOCK [Concomitant]
     Active Substance: HEPARIN SODIUM
     Dosage: BID, 10 ML IN THE MORNING AND 20 ML AT NOON
     Route: 065
     Dates: start: 20141129, end: 20141129
  196. HEPARIN NA LOCK [Concomitant]
     Active Substance: HEPARIN SODIUM
     Dosage: 10 ML, TID
     Route: 065
     Dates: start: 20141211, end: 20141213
  197. HEPARIN NA LOCK [Concomitant]
     Active Substance: HEPARIN SODIUM
     Dosage: 10 ML, QID
     Route: 065
     Dates: start: 20141214, end: 20141214
  198. HEPARIN NA LOCK [Concomitant]
     Active Substance: HEPARIN SODIUM
     Dosage: 10 ML, QID
     Route: 065
     Dates: start: 20141231, end: 20141231
  199. HEPARIN NA LOCK [Concomitant]
     Active Substance: HEPARIN SODIUM
     Dosage: 10 ML, TID
     Route: 065
     Dates: start: 20150114, end: 20150115
  200. ELNEOPA NO.2 [Concomitant]
     Active Substance: AMINO ACIDS\DEXTROSE\ELECTROLYTES NOS\MINERALS\VITAMINS
     Dosage: 1000 ML, QD
     Route: 065
     Dates: start: 20150109, end: 20150110
  201. PROGRAF [Concomitant]
     Active Substance: TACROLIMUS
     Dosage: 0.6 MG, QD
     Route: 065
     Dates: start: 20141212, end: 20141212
  202. PROGRAF [Concomitant]
     Active Substance: TACROLIMUS
     Dosage: 0.9 MG, QD
     Route: 065
     Dates: start: 20150106, end: 20150107
  203. AZUNOL GARGLE LIQUID [Concomitant]
     Dosage: UNK
     Dates: start: 20141209, end: 20141210
  204. AZUNOL GARGLE LIQUID [Concomitant]
     Dosage: UNK
     Dates: start: 20141217, end: 20141217
  205. LAC-B [Concomitant]
     Active Substance: BIFIDOBACTERIUM SPP.
     Dosage: 1 G, TID, AFTER EVERY MEAL
     Route: 048
     Dates: start: 20150112, end: 20150115
  206. METHOTREXATE. [Concomitant]
     Active Substance: METHOTREXATE
     Dosage: 14 MG, QD
     Route: 065
     Dates: start: 20141204, end: 20141204
  207. METHOTREXATE. [Concomitant]
     Active Substance: METHOTREXATE
     Dosage: 10 MG, QD
     Route: 065
     Dates: start: 20141206, end: 20141206
  208. ELNEOPA NO.1 [Concomitant]
     Active Substance: AMINO ACIDS\DEXTROSE\ELECTROLYTES NOS\MINERALS\VITAMINS
     Dosage: 1000 ML, QD
     Route: 065
     Dates: start: 20150111, end: 20150115
  209. HAPTOGLOBIN [Concomitant]
     Dosage: 2000 IU, QD
     Route: 065
     Dates: start: 20141204, end: 20141204
  210. ZOSYN [Concomitant]
     Active Substance: PIPERACILLIN SODIUM\TAZOBACTAM SODIUM
     Dosage: 4500 MG, TID
     Route: 065
     Dates: start: 20150103, end: 20150109
  211. CLARITH [Concomitant]
     Active Substance: CLARITHROMYCIN
     Dosage: 200 MG, BID, AFTER BREAKFAST AND DINNER
     Route: 048
     Dates: start: 20150120, end: 20150123
  212. PROGRAF [Concomitant]
     Active Substance: TACROLIMUS
     Dosage: 1 MG, QD, AFTER DINNER
     Route: 048
     Dates: start: 20150108, end: 20150108
  213. PROGRAF [Concomitant]
     Active Substance: TACROLIMUS
     Dosage: 1 MG, QD, AFTER DINNER
     Route: 048
     Dates: start: 20150108, end: 20150108
  214. CARBOCISTEINE [Concomitant]
     Active Substance: CARBOCYSTEINE
     Dosage: 500 MG, 6X/DAY
     Route: 048
     Dates: start: 20150123, end: 20150123
  215. CARBOCISTEINE [Concomitant]
     Active Substance: CARBOCYSTEINE
     Dosage: 500 MG, TID, AFTER EVERY MEAL
     Route: 048
     Dates: start: 20150124, end: 20150131
  216. ATARAX [Concomitant]
     Active Substance: HYDROXYZINE HYDROCHLORIDE
     Dosage: 25 MG, QD
     Route: 065
     Dates: start: 20150106, end: 20150106
  217. POTELIGEO [Suspect]
     Active Substance: MOGAMULIZUMAB-KPKC
     Indication: ADULT T-CELL LYMPHOMA/LEUKAEMIA
     Dosage: 44 MG, 1X/WEEK
     Route: 041
     Dates: start: 20140924, end: 20141022
  218. DEPAKENE-R TABLETS 200 [Concomitant]
     Dosage: 2 DF, BID, 9:00 AND 21:00
     Route: 048
     Dates: start: 20141126, end: 20141129
  219. URSO [Concomitant]
     Active Substance: URSODIOL
     Dosage: 200 MG, 6X/DAY
     Route: 048
     Dates: start: 20141127, end: 20141127
  220. TAKEPRON [Concomitant]
     Active Substance: LANSOPRAZOLE
     Dosage: 15 MG, BID
     Route: 048
     Dates: start: 20150108, end: 20150108
  221. RESTAMIN KOWA [Concomitant]
     Dosage: 10 G
     Route: 061
     Dates: start: 20141121, end: 20141121
  222. ACICLOVIR [Concomitant]
     Active Substance: ACYCLOVIR
     Dosage: 200 MG, 5X/DAY, AFTER EVERY MEAL, AT 15:00 AND BEDTIME
     Route: 048
     Dates: start: 20141125, end: 20141126
  223. SEISHOKU [Concomitant]
     Active Substance: SODIUM CHLORIDE
     Dosage: 100 ML, 5X/DAY
     Route: 065
     Dates: start: 20141215, end: 20141220
  224. SEISHOKU [Concomitant]
     Active Substance: SODIUM CHLORIDE
     Dosage: 100 ML, 7X/DAY
     Route: 065
     Dates: start: 20141221, end: 20141221
  225. SEISHOKU [Concomitant]
     Active Substance: SODIUM CHLORIDE
     Dosage: 500 ML
     Route: 065
     Dates: start: 20150101, end: 20150101
  226. SEISHOKU [Concomitant]
     Active Substance: SODIUM CHLORIDE
     Dosage: 900 ML
     Route: 065
     Dates: start: 20150103, end: 20150103
  227. SEISHOKU [Concomitant]
     Active Substance: SODIUM CHLORIDE
     Dosage: 1050 ML
     Route: 065
     Dates: start: 20150104, end: 20150104
  228. SEISHOKU [Concomitant]
     Active Substance: SODIUM CHLORIDE
     Dosage: 200 ML
     Route: 065
     Dates: start: 20150114, end: 20150116
  229. DISTILLED WATER [WATER FOR INJECTION] [Concomitant]
     Dosage: 2.5 ML, QD
     Route: 065
     Dates: start: 20141125, end: 20141130
  230. SEISHOKU [Concomitant]
     Active Substance: SODIUM CHLORIDE
     Dosage: 20 ML, BID
     Route: 065
     Dates: start: 20141206, end: 20141206
  231. SEISHOKU [Concomitant]
     Active Substance: SODIUM CHLORIDE
     Dosage: 20 ML, QID
     Route: 065
     Dates: start: 20150103, end: 20150104
  232. SEISHOKU [Concomitant]
     Active Substance: SODIUM CHLORIDE
     Dosage: 20 ML, QD
     Route: 065
     Dates: start: 20150107, end: 20150107
  233. SOLDEM 3A [Concomitant]
     Active Substance: CARBOHYDRATES\POTASSIUM CHLORIDE\SODIUM CHLORIDE\SODIUM LACTATE
     Dosage: 500ML IN THE MORNING AND 1000ML IN THE AFTERNOON
     Route: 065
     Dates: start: 20141125, end: 20141125
  234. MEYLON [Concomitant]
     Active Substance: SODIUM BICARBONATE
     Dosage: 60 ML, QD
     Route: 042
     Dates: start: 20141127, end: 20141128
  235. LASIX [Concomitant]
     Active Substance: FUROSEMIDE
     Dosage: 10 MG, QD
     Route: 065
     Dates: start: 20141128, end: 20141128
  236. LASIX [Concomitant]
     Active Substance: FUROSEMIDE
     Dosage: 10 MG, QD
     Route: 065
     Dates: start: 20141223, end: 20141223
  237. SEISHOKU [Concomitant]
     Active Substance: SODIUM CHLORIDE
     Dosage: 250 ML, QD
     Route: 065
     Dates: start: 20141205, end: 20141211
  238. PANTOL [DEXPANTHENOL] [Concomitant]
     Dosage: 500 MG, QD
     Route: 065
     Dates: start: 20141216, end: 20141224
  239. MAXIPIME [Concomitant]
     Active Substance: CEFEPIME HYDROCHLORIDE
     Dosage: 2000 MG, TID
     Route: 065
     Dates: start: 20141214, end: 20141221
  240. ROPION [Concomitant]
     Active Substance: FLURBIPROFEN AXETIL
     Dosage: 50 MG, BID
     Route: 065
     Dates: start: 20141230, end: 20141230
  241. ROPION [Concomitant]
     Active Substance: FLURBIPROFEN AXETIL
     Dosage: 150 MG
     Route: 065
     Dates: start: 20141231, end: 20141231
  242. ROPION [Concomitant]
     Active Substance: FLURBIPROFEN AXETIL
     Dosage: 50 MG, QD
     Route: 065
     Dates: start: 20150101, end: 20150101
  243. ROPION [Concomitant]
     Active Substance: FLURBIPROFEN AXETIL
     Dosage: 150 MG
     Route: 065
     Dates: start: 20150102, end: 20150102
  244. MAGNESIUM SULFATE. [Concomitant]
     Active Substance: MAGNESIUM SULFATE
     Dosage: 20 ML, QD
     Route: 065
     Dates: start: 20141208, end: 20141221
  245. MAGNESIUM SULFATE. [Concomitant]
     Active Substance: MAGNESIUM SULFATE
     Dosage: 20 ML, QD
     Route: 065
     Dates: start: 20141223, end: 20141225
  246. PROGRAF [Concomitant]
     Active Substance: TACROLIMUS
     Dosage: 1.1 MG, QD
     Route: 065
     Dates: start: 20141220, end: 20150104
  247. AZUNOL GARGLE LIQUID [Concomitant]
     Dosage: UNK
     Dates: start: 20141215, end: 20141215
  248. ZOSYN [Concomitant]
     Active Substance: PIPERACILLIN SODIUM\TAZOBACTAM SODIUM
     Dosage: 4500 MG, BID
     Route: 065
     Dates: start: 20150102, end: 20150102
  249. ITRIZOLE [Concomitant]
     Active Substance: ITRACONAZOLE
     Dosage: 200 MG, QD, BEFORE LUNCH
     Route: 048
     Dates: start: 20150117, end: 20150122
  250. PROGRAF [Concomitant]
     Active Substance: TACROLIMUS
     Dosage: 1 MG, QD, AFTER BREAKFAST
     Route: 048
     Dates: start: 20150108, end: 20150108
  251. PROGRAF [Concomitant]
     Active Substance: TACROLIMUS
     Dosage: UNK
     Route: 048
     Dates: start: 20150119, end: 20150122
  252. VANCOMYCIN [VANCOMYCIN HYDROCHLORIDE] [Concomitant]
     Active Substance: VANCOMYCIN HYDROCHLORIDE
     Dosage: 1000 MG, QD
     Route: 042
     Dates: start: 20150105, end: 20150105
  253. PREDONINE [Concomitant]
     Active Substance: PREDNISOLONE
     Dosage: 5 MG, BID, AFTER BREAKFAST AND LUNCH
     Route: 048
     Dates: start: 20150117, end: 20150123
  254. PREDONINE [Concomitant]
     Active Substance: PREDNISOLONE
     Dosage: UNK UNK, BID, AFTER BREAKFAST AND LUNCH
     Route: 048
     Dates: start: 20150124, end: 20150131

REACTIONS (2)
  - Acute graft versus host disease [Recovering/Resolving]
  - Graft versus host disease in skin [Recovering/Resolving]

NARRATIVE: CASE EVENT DATE: 20150103
